FAERS Safety Report 8599215-0 (Version None)
Quarter: 2012Q3

REPORT INFORMATION
  Report Type: 
  Country: None (occurrence: None)
  Receive Date: 20120816
  Receipt Date: 20111003
  Transmission Date: 20120928
  Serious: No
  Sender: FDA-Public Use
  Company Number: US-AMGEN-USASP2011050999

PATIENT
  Age: 12 Year
  Sex: Female

DRUGS (1)
  1. NEUPOGEN [Suspect]
     Indication: WHITE BLOOD CELL COUNT DECREASED
     Dosage: 300 MUG, 3 TIMES/WK
     Dates: start: 20100101

REACTIONS (2)
  - CRYING [None]
  - INJECTION SITE PAIN [None]
